FAERS Safety Report 7772866-9 (Version None)
Quarter: 2011Q3

REPORT INFORMATION
  Report Type: 
  Country: None (occurrence: None)
  Receive Date: 20110922
  Receipt Date: 20110617
  Transmission Date: 20111222
  Serious: No
  Sender: FDA-Public Use
  Company Number: US-ASTRAZENECA-2011SE13897

PATIENT
  Age: 61 Year
  Sex: Female
  Weight: 72.6 kg

DRUGS (9)
  1. DOXACINE [Concomitant]
  2. SEROQUEL [Suspect]
     Route: 048
     Dates: start: 20110307, end: 20110501
  3. LIPITOR [Concomitant]
  4. SEROQUEL [Suspect]
     Indication: DEPRESSION
     Route: 048
     Dates: start: 20101001, end: 20110307
  5. SEROQUEL [Suspect]
     Indication: ANXIETY
     Route: 048
     Dates: start: 20101001, end: 20110307
  6. IMIPRAMINE [Concomitant]
  7. SEROQUEL [Suspect]
     Route: 048
     Dates: start: 20110307, end: 20110501
  8. SEROQUEL [Suspect]
     Indication: INSOMNIA
     Route: 048
     Dates: start: 20101001, end: 20110307
  9. SEROQUEL [Suspect]
     Route: 048
     Dates: start: 20110307, end: 20110501

REACTIONS (5)
  - ABDOMINAL PAIN UPPER [None]
  - ANXIETY [None]
  - INSOMNIA [None]
  - SEASONAL AFFECTIVE DISORDER [None]
  - DRUG INEFFECTIVE FOR UNAPPROVED INDICATION [None]
